FAERS Safety Report 6398555-3 (Version None)
Quarter: 2009Q4

REPORT INFORMATION
  Report Type: 
  Country: None (occurrence: None)
  Receive Date: 20091007
  Receipt Date: 20090929
  Transmission Date: 20100525
  Serious: Yes (Life-Threatening)
  Sender: FDA-Public Use
  Company Number: JP-1171124

PATIENT

DRUGS (2)
  1. BSS PLUS [Suspect]
     Dosage: INTRAOCULAR
     Route: 031
  2. OPEGAN HI (HYALURONATE SODIUM) [Concomitant]

REACTIONS (3)
  - HEPATIC FUNCTION ABNORMAL [None]
  - PYREXIA [None]
  - RENAL IMPAIRMENT [None]
